FAERS Safety Report 25737070 (Version 1)
Quarter: 2025Q3

REPORT INFORMATION
  Report Type: Spontaneous
  Country: JP (occurrence: JP)
  Receive Date: 20250828
  Receipt Date: 20250828
  Transmission Date: 20251021
  Serious: Yes (Other)
  Sender: PFIZER
  Company Number: JP-PFIZER INC-PV202500103610

PATIENT
  Age: 84 Year
  Sex: Male

DRUGS (1)
  1. VFEND [Suspect]
     Active Substance: VORICONAZOLE
     Dates: start: 201904, end: 202303

REACTIONS (3)
  - Photosensitivity reaction [Unknown]
  - Actinic keratosis [Unknown]
  - Squamous cell carcinoma of skin [Unknown]
